FAERS Safety Report 5357866-0 (Version None)
Quarter: 2007Q2

REPORT INFORMATION
  Report Type: 
  Country: None (occurrence: None)
  Receive Date: 20070614
  Receipt Date: 20070607
  Transmission Date: 20071010
  Serious: Yes (Hospitalization)
  Sender: FDA-Public Use
  Company Number: FR-MERCK-0706FRA00017

PATIENT
  Age: 67 Year
  Sex: Male

DRUGS (4)
  1. ZETIA [Suspect]
     Indication: HYPERCHOLESTEROLAEMIA
     Route: 048
     Dates: start: 20050615
  2. BENFLUOREX HYDROCHLORIDE [Suspect]
     Indication: HYPERTRIGLYCERIDAEMIA
     Route: 048
  3. ACEPROMAZINE AND ACEPROMETAZINE AND CLORAZEPATE DIPOTASSIUM [Suspect]
     Route: 048
  4. PRAVASTATIN SODIUM [Suspect]
     Indication: HYPERCHOLESTEROLAEMIA
     Route: 048

REACTIONS (1)
  - INTERSTITIAL LUNG DISEASE [None]
